FAERS Safety Report 25670425 (Version 1)
Quarter: 2025Q3

REPORT INFORMATION
  Report Type: Report from Study
  Country: JP (occurrence: JP)
  Receive Date: 20250812
  Receipt Date: 20250812
  Transmission Date: 20251021
  Serious: Yes (Hospitalization)
  Sender: SANDOZ
  Company Number: JP-002147023-NVSJ2019JP105004

PATIENT
  Age: 61 Year
  Sex: Male
  Weight: 46.3 kg

DRUGS (10)
  1. CAPECITABINE [Suspect]
     Active Substance: CAPECITABINE
     Dosage: 1200 MILLIGRAM, BID (2400 MG, QD)
     Route: 048
     Dates: start: 20191010, end: 20191015
  2. CAPECITABINE [Suspect]
     Active Substance: CAPECITABINE
     Indication: Gastric cancer
     Dosage: 1500 MILLIGRAM, BID (3000 MG, QD)
     Route: 048
     Dates: start: 20190905, end: 20190924
  3. OXALIPLATIN [Suspect]
     Active Substance: OXALIPLATIN
     Dosage: 143 MILLIGRAM, Q3WK
     Route: 042
     Dates: start: 20191010, end: 20191010
  4. OXALIPLATIN [Suspect]
     Active Substance: OXALIPLATIN
     Indication: Gastric cancer
     Dosage: 200.2 MILLIGRAM, Q3WK
     Route: 042
     Dates: start: 20190905, end: 20190924
  5. CALONAL [Concomitant]
     Active Substance: ACETAMINOPHEN
     Indication: Cancer pain
     Dosage: 300 MILLIGRAM, TID
     Route: 048
     Dates: start: 20190814
  6. LANSOPRAZOLE [Concomitant]
     Active Substance: LANSOPRAZOLE
     Indication: Prophylaxis against gastrointestinal ulcer
     Dosage: 30 MILLIGRAM, QD
     Route: 048
     Dates: start: 20190814
  7. MAGNESIUM OXIDE [Concomitant]
     Active Substance: MAGNESIUM OXIDE
     Indication: Constipation
     Dosage: 250 MILLIGRAM, TID
     Route: 048
     Dates: start: 20190814
  8. OLANZAPINE [Concomitant]
     Active Substance: OLANZAPINE
     Indication: Nausea
     Dosage: 5 MILLIGRAM, QD
     Route: 048
     Dates: start: 20190910
  9. OXYCONTIN [Concomitant]
     Active Substance: OXYCODONE HYDROCHLORIDE
     Indication: Cancer pain
     Dosage: 5 MILLIGRAM, BID
     Route: 048
     Dates: start: 20190814
  10. OXYCODONE HYDROCHLORIDE [Concomitant]
     Active Substance: OXYCODONE HYDROCHLORIDE
     Indication: Cancer pain
     Route: 048
     Dates: start: 20190814

REACTIONS (2)
  - Pyrexia [Recovered/Resolved]
  - Decreased appetite [Recovered/Resolved]

NARRATIVE: CASE EVENT DATE: 20190913
